APPROVED DRUG PRODUCT: THORAZINE
Active Ingredient: CHLORPROMAZINE HYDROCHLORIDE
Strength: 10MG/5ML **Federal Register determination that product was not discontinued or withdrawn for safety or effectiveness reasons**
Dosage Form/Route: SYRUP;ORAL
Application: N009149 | Product #022
Applicant: GLAXOSMITHKLINE
Approved: Approved Prior to Jan 1, 1982 | RLD: Yes | RS: No | Type: DISCN